FAERS Safety Report 19674935 (Version 1)
Quarter: 2021Q3

REPORT INFORMATION
  Report Type: Spontaneous
  Country: US (occurrence: US)
  Receive Date: 20210809
  Receipt Date: 20210809
  Transmission Date: 20211014
  Serious: Yes (Other)
  Sender: FDA-Public Use
  Company Number: None

PATIENT
  Age: 51 Year
  Sex: Male
  Weight: 165.1 kg

DRUGS (2)
  1. NIVOLUMAB [Suspect]
     Active Substance: NIVOLUMAB
     Route: 040
     Dates: start: 20210518
  2. IPILIMUMAB [Concomitant]
     Active Substance: IPILIMUMAB
     Dates: start: 20210518

REACTIONS (4)
  - Pain in extremity [None]
  - Chest pain [None]
  - Dyspnoea [None]
  - Back pain [None]

NARRATIVE: CASE EVENT DATE: 20210608
